FAERS Safety Report 9851747 (Version 2)
Quarter: 2014Q1

REPORT INFORMATION
  Report Type: Spontaneous
  Country: US (occurrence: US)
  Receive Date: 20140129
  Receipt Date: 20140221
  Transmission Date: 20141002
  Serious: Yes (Hospitalization)
  Sender: FDA-Public Use
  Company Number: US-ROCHE-1338449

PATIENT
  Age: 49 Year
  Sex: Female

DRUGS (8)
  1. PEGASYS [Suspect]
     Indication: CHRONIC HEPATITIS C
     Dosage: PROCLICK
     Route: 065
     Dates: start: 20130917, end: 20140206
  2. RIBAVIRIN [Suspect]
     Indication: CHRONIC HEPATITIS C
     Dosage: DIVIDED DOSES
     Route: 065
     Dates: start: 20130917, end: 20140206
  3. INCIVEK [Suspect]
     Indication: CHRONIC HEPATITIS C
     Route: 065
     Dates: start: 20130917, end: 20140206
  4. LISINOPRIL [Concomitant]
  5. CELEXA (UNITED STATES) [Concomitant]
  6. METROPOLOL COMP [Concomitant]
  7. CLINDAMYCIN [Concomitant]
  8. VICODIN [Concomitant]

REACTIONS (7)
  - Cardiac murmur [Unknown]
  - Body temperature increased [Unknown]
  - Hypotension [Unknown]
  - Oral pain [Unknown]
  - White blood cell count decreased [Unknown]
  - Depression [Unknown]
  - Skin exfoliation [Unknown]
